FAERS Safety Report 17892195 (Version 2)
Quarter: 2025Q3

REPORT INFORMATION
  Report Type: Spontaneous
  Country: EU (occurrence: EU)
  Receive Date: 20200613
  Receipt Date: 20250703
  Transmission Date: 20251020
  Serious: Yes (Other)
  Sender: AUROBINDO
  Company Number: EU-MLMSERVICE-20200601-2326590-1

PATIENT
  Age: 69 Year
  Sex: Male

DRUGS (6)
  1. BISOPROLOL [Suspect]
     Active Substance: BISOPROLOL
     Indication: Hypertension
     Dosage: 2.5 MILLIGRAM, TWO TIMES A DAY
     Route: 065
  2. ASPIRIN [Concomitant]
     Active Substance: ASPIRIN
     Indication: Coronary artery disease
     Dosage: 100 MILLIGRAM, ONCE A DAY
     Route: 065
  3. ATORVASTATIN [Concomitant]
     Active Substance: ATORVASTATIN
     Indication: Hypertension
     Dosage: 20 MILLIGRAM, ONCE A DAY
     Route: 065
  4. ATORVASTATIN [Concomitant]
     Active Substance: ATORVASTATIN
     Dosage: 40 MILLIGRAM, ONCE A DAY
     Route: 065
  5. RAMIPRIL [Concomitant]
     Active Substance: RAMIPRIL
     Indication: Hypertension
     Dosage: 5 MILLIGRAM, ONCE A DAY
     Route: 065
  6. ADENOSINE [Concomitant]
     Active Substance: ADENOSINE
     Indication: Hyperaemia
     Route: 042

REACTIONS (3)
  - Bradycardia [Recovering/Resolving]
  - Condition aggravated [Recovered/Resolved]
  - Asthenia [Recovered/Resolved]
